FAERS Safety Report 9133353 (Version 1)
Quarter: 2013Q1

REPORT INFORMATION
  Report Type: Report from Study
  Country: US (occurrence: US)
  Receive Date: 20130129
  Receipt Date: 20130129
  Transmission Date: 20140127
  Serious: No
  Sender: FDA-Public Use
  Company Number: US-ABBOTT-12P-163-0933696-00

PATIENT
  Age: 41 Year
  Sex: Female

DRUGS (16)
  1. HUMIRA 40 MG/0.8 ML PEN [Suspect]
     Indication: RHEUMATOID ARTHRITIS
     Dates: start: 20120405
  2. METHOTREXATE [Concomitant]
     Indication: PRODUCT USED FOR UNKNOWN INDICATION
     Dosage: 2.5MG - 5 TABLETS PER WEEK
  3. HYDROQUINONE [Concomitant]
     Indication: RHEUMATOID ARTHRITIS
  4. FOLIC ACID [Concomitant]
     Indication: PRODUCT USED FOR UNKNOWN INDICATION
     Dosage: PILL
  5. NEXIUM [Concomitant]
     Indication: GASTROOESOPHAGEAL REFLUX DISEASE
  6. BACLOFEN [Concomitant]
     Indication: PRODUCT USED FOR UNKNOWN INDICATION
  7. BACLOFEN [Concomitant]
     Dosage: AT BED TIME
  8. OSCAL D [Concomitant]
     Indication: PRODUCT USED FOR UNKNOWN INDICATION
  9. VITAMIN D3 [Concomitant]
     Indication: PRODUCT USED FOR UNKNOWN INDICATION
  10. SYNTHROID [Concomitant]
     Indication: THYROID DISORDER
  11. LEVOTHYROXINE [Concomitant]
     Indication: THYROID DISORDER
     Dosage: 5MCG, 4 PILLS A DAY
  12. PAROXETINE [Concomitant]
     Indication: DEPRESSION
  13. TRAZODONE [Concomitant]
     Indication: INSOMNIA
     Dosage: AT BEDTIME
  14. FERROUS GLUCONATE [Concomitant]
     Indication: ANAEMIA
  15. MORPHINE SULFATE [Concomitant]
     Indication: ARTHRALGIA
  16. STOOL SOFTNER [Concomitant]
     Indication: CONSTIPATION
     Dosage: ONCE A DAY AS NEEDED

REACTIONS (1)
  - Liver function test abnormal [Not Recovered/Not Resolved]
